FAERS Safety Report 5910964-2 (Version None)
Quarter: 2008Q4

REPORT INFORMATION
  Report Type: 
  Country: None (occurrence: None)
  Receive Date: 20081003
  Receipt Date: 20081003
  Transmission Date: 20090506
  Serious: Yes (Disabling)
  Sender: FDA-Public Use
  Company Number: None

PATIENT
  Age: 52 Year
  Sex: Female
  Weight: 90.7194 kg

DRUGS (1)
  1. TARCEVA [Suspect]
     Indication: LUNG ADENOCARCINOMA
     Dosage: 150MG QOD PO
     Route: 048
     Dates: start: 20080221, end: 20080930

REACTIONS (4)
  - JAUNDICE [None]
  - NO THERAPEUTIC RESPONSE [None]
  - PRURITUS GENERALISED [None]
  - SKIN IRRITATION [None]
